FAERS Safety Report 4549652-6 (Version None)
Quarter: 2005Q1

REPORT INFORMATION
  Report Type: 
  Country: None (occurrence: None)
  Receive Date: 20050106
  Receipt Date: 20041221
  Transmission Date: 20050727
  Serious: Yes (Other)
  Sender: FDA-Public Use
  Company Number: 040068

PATIENT
  Age: 75 Year
  Sex: Female

DRUGS (1)
  1. HALFLYTELY [Suspect]
     Indication: COLONOSCOPY
     Dosage: 20 MG/2 LITER
     Dates: start: 20041207

REACTIONS (3)
  - ANAEMIA [None]
  - COLITIS ISCHAEMIC [None]
  - WEIGHT DECREASED [None]
